FAERS Safety Report 22892273 (Version 7)
Quarter: 2024Q2

REPORT INFORMATION
  Report Type: Spontaneous
  Country: CA (occurrence: CA)
  Receive Date: 20230901
  Receipt Date: 20240605
  Transmission Date: 20240715
  Serious: Yes (Other)
  Sender: FDA-Public Use
  Company Number: CA-CELLTRION INC.-2023CA015503

PATIENT

DRUGS (14)
  1. INFLECTRA [Suspect]
     Active Substance: INFLIXIMAB-DYYB
     Indication: Crohn^s disease
     Dosage: 5 MG/KG W0 , 2 , 6 AND Q8 WEEKS
     Route: 042
     Dates: start: 20230712
  2. INFLECTRA [Suspect]
     Active Substance: INFLIXIMAB-DYYB
     Dosage: 460 MG (5 MG/KG 8 WEEKS (W2), W0 , 2 , 6 AND Q8 WEEKS
     Route: 042
     Dates: start: 20230727
  3. INFLECTRA [Suspect]
     Active Substance: INFLIXIMAB-DYYB
     Dosage: 460 MG (5 MG/KG 8 WEEKS (W2), W0 , 2 , 6 AND Q8 WEEKS
     Route: 042
     Dates: start: 20230727
  4. INFLECTRA [Suspect]
     Active Substance: INFLIXIMAB-DYYB
     Dosage: 460 MG (5 MG/KG 8 WEEKS (W2), W0 , 2 , 6 AND Q8 WEEKS
     Route: 042
     Dates: start: 20230823
  5. INFLECTRA [Suspect]
     Active Substance: INFLIXIMAB-DYYB
     Dosage: 490 MG, W0 , 2 , 6 AND Q8 WEEKS
     Route: 042
     Dates: start: 20231018
  6. INFLECTRA [Suspect]
     Active Substance: INFLIXIMAB-DYYB
     Dosage: 490 MG, W0 , 2 , 6 AND Q8 WEEKS
     Route: 042
     Dates: start: 20231211
  7. INFLECTRA [Suspect]
     Active Substance: INFLIXIMAB-DYYB
     Dosage: 5 MG/KG, W0, 2, 6 AND Q8 WEEKS (500 MG 8 WEEKS)
     Route: 042
     Dates: start: 20240205
  8. INFLECTRA [Suspect]
     Active Substance: INFLIXIMAB-DYYB
     Dosage: 5 MG/KG, W0, 2, 6 AND Q8 WEEKS
     Route: 042
     Dates: start: 20240402
  9. INFLECTRA [Suspect]
     Active Substance: INFLIXIMAB-DYYB
     Dosage: 5 MG/KG, W0, 2, 6 AND Q8 WEEKS(8 WEEKS)
     Route: 042
     Dates: start: 20240528
  10. BUTYLSCOPOLAMINE BROMIDE [Concomitant]
     Active Substance: BUTYLSCOPOLAMINE BROMIDE
     Dosage: 1 DF
  11. CHOLESTYRAMINE [Concomitant]
     Active Substance: CHOLESTYRAMINE
     Dosage: 1 DF, 2X/DAY
  12. COLESEVELAM [Concomitant]
     Active Substance: COLESEVELAM
     Dosage: UNK, DAILY
  13. PREDNISONE [Concomitant]
     Active Substance: PREDNISONE
     Dosage: UNK
     Dates: start: 202203
  14. PREDNISONE [Concomitant]
     Active Substance: PREDNISONE
     Dosage: 1 DF
     Dates: start: 202305

REACTIONS (6)
  - Ligament rupture [Unknown]
  - Weight increased [Unknown]
  - Condition aggravated [Recovering/Resolving]
  - Arthralgia [Recovered/Resolved]
  - Vomiting [Recovering/Resolving]
  - Off label use [Unknown]

NARRATIVE: CASE EVENT DATE: 20230101
